FAERS Safety Report 9837444 (Version 1)
Quarter: 2014Q1

REPORT INFORMATION
  Report Type: Spontaneous
  Country: US (occurrence: None)
  Receive Date: 20140117
  Receipt Date: 20140117
  Transmission Date: 20141002
  Serious: Yes (Other)
  Sender: FDA-Public Use
  Company Number: None

PATIENT
  Age: 34 Year
  Sex: Male
  Weight: 86.18 kg

DRUGS (1)
  1. METHYLPHENIDATE [Suspect]
     Dosage: 27      ONCE DAILY TAKEN BY MOUTH
     Route: 048
     Dates: start: 20131101, end: 20140112

REACTIONS (1)
  - Drug ineffective [None]
